FAERS Safety Report 8050751-5 (Version None)
Quarter: 2012Q1

REPORT INFORMATION
  Report Type: 
  Country: None (occurrence: None)
  Receive Date: 20120117
  Receipt Date: 20120117
  Transmission Date: 20120608
  Serious: Yes (Other)
  Sender: FDA-Public Use
  Company Number: None

PATIENT
  Age: 9 Year
  Sex: Female
  Weight: 34.019 kg

DRUGS (1)
  1. FLUOXETINE [Suspect]
     Dosage: 10 MG
     Dates: start: 20111228, end: 20120113

REACTIONS (8)
  - AGGRESSION [None]
  - ERYTHEMA [None]
  - TACHYPHRENIA [None]
  - DYSPNOEA [None]
  - SCREAMING [None]
  - DISTURBANCE IN SOCIAL BEHAVIOUR [None]
  - CONVERSION DISORDER [None]
  - EDUCATIONAL PROBLEM [None]
